FAERS Safety Report 5218446-0 (Version None)
Quarter: 2007Q1

REPORT INFORMATION
  Report Type: 
  Country: None (occurrence: None)
  Receive Date: 20061201
  Receipt Date: 20061006
  Transmission Date: 20070707
  Serious: Yes (Hospitalization)
  Sender: FDA-Public Use
  Company Number: SPV1-2006-00793

PATIENT
  Age: 40 Year
  Sex: Female

DRUGS (1)
  1. ADDERALL XR 50 [Suspect]
     Dosage: SEE IMAGE

REACTIONS (2)
  - MYOCARDIAL INFARCTION [None]
  - PRESCRIBED OVERDOSE [None]
